FAERS Safety Report 10958760 (Version 1)
Quarter: 2015Q1

REPORT INFORMATION
  Report Type: Spontaneous
  Country: US (occurrence: None)
  Receive Date: 20150226
  Receipt Date: 20150226
  Transmission Date: 20150721
  Serious: Yes (Hospitalization)
  Sender: FDA-Public Use
  Company Number: TPA2009A02732

PATIENT
  Age: 71 Year
  Sex: Female
  Weight: 72.58 kg

DRUGS (5)
  1. PREVACID [Suspect]
     Active Substance: LANSOPRAZOLE
     Indication: GASTROOESOPHAGEAL REFLUX DISEASE
     Route: 048
     Dates: start: 2004, end: 20090916
  2. DIOVAN [Concomitant]
     Active Substance: VALSARTAN
  3. HYDROCHLOROTHIAZIDE (HYDROCHLOROTHIAZIDE) [Suspect]
     Active Substance: HYDROCHLOROTHIAZIDE
     Indication: HYPERTENSION
     Route: 048
     Dates: start: 2009
  4. TENORMIN [Concomitant]
     Active Substance: ATENOLOL
  5. HYDROCHLOROTHIAZIDE (HYDROCHLOROTHIAZIDE) [Suspect]
     Active Substance: HYDROCHLOROTHIAZIDE
     Indication: FLUID RETENTION
     Route: 048
     Dates: start: 2009

REACTIONS (4)
  - Diarrhoea [None]
  - Dehydration [None]
  - Vomiting [None]
  - Irritable bowel syndrome [None]

NARRATIVE: CASE EVENT DATE: 2009
